FAERS Safety Report 7450931-3 (Version None)
Quarter: 2011Q2

REPORT INFORMATION
  Report Type: 
  Country: None (occurrence: None)
  Receive Date: 20110502
  Receipt Date: 20110428
  Transmission Date: 20111010
  Serious: No
  Sender: FDA-Public Use
  Company Number: US-PFIZER INC-2011092495

PATIENT
  Sex: Female

DRUGS (2)
  1. PRISTIQ [Suspect]
     Indication: DEPRESSION
     Dosage: 50 MG, DAILY
     Route: 048
     Dates: start: 20110317
  2. PRISTIQ [Suspect]
     Indication: ANXIETY
     Dosage: 50 MG, 2X/DAY
     Dates: start: 20110419

REACTIONS (1)
  - NAUSEA [None]
